FAERS Safety Report 4814272-2 (Version None)
Quarter: 2005Q4

REPORT INFORMATION
  Report Type: 
  Country: None (occurrence: None)
  Receive Date: 20051028
  Receipt Date: 20050728
  Transmission Date: 20060501
  Serious: No
  Sender: FDA-Public Use
  Company Number: US-GLAXOSMITHKLINE-A0568104A

PATIENT
  Age: 69 Year
  Sex: Female

DRUGS (10)
  1. ADVAIR DISKUS 100/50 [Suspect]
     Indication: CHRONIC OBSTRUCTIVE PULMONARY DISEASE
     Dosage: 1PUFF TWICE PER DAY
     Route: 055
     Dates: start: 20040101
  2. LOVASTATIN [Concomitant]
  3. BELLAMINE [Concomitant]
  4. QUININE SULFATE [Concomitant]
  5. ALEVE [Concomitant]
  6. ALBUTEROL [Concomitant]
  7. ESPERAL [Concomitant]
  8. CALCIUM GLUCONATE [Concomitant]
  9. VITAMIN D [Concomitant]
  10. TYLENOL (CAPLET) [Concomitant]

REACTIONS (4)
  - DRUG INEFFECTIVE [None]
  - DRY THROAT [None]
  - FEELING ABNORMAL [None]
  - PHARMACEUTICAL PRODUCT COMPLAINT [None]
